FAERS Safety Report 5319981-7 (Version None)
Quarter: 2007Q2

REPORT INFORMATION
  Report Type: 
  Country: None (occurrence: None)
  Receive Date: 20070509
  Receipt Date: 20070501
  Transmission Date: 20071010
  Serious: Yes (Death, Other)
  Sender: FDA-Public Use
  Company Number: US-ELI_LILLY_AND_COMPANY-US200704006090

PATIENT
  Sex: Female

DRUGS (1)
  1. XIGRIS [Suspect]
     Indication: SEPSIS
     Dosage: 24 UG, OTHER
     Route: 042
     Dates: start: 20070318, end: 20070319

REACTIONS (2)
  - HAEMORRHAGE [None]
  - MULTI-ORGAN FAILURE [None]
